FAERS Safety Report 4378437-9 (Version None)
Quarter: 2004Q2

REPORT INFORMATION
  Report Type: 
  Country: None (occurrence: None)
  Receive Date: 20040609
  Receipt Date: 20040526
  Transmission Date: 20050107
  Serious: Yes (Death)
  Sender: FDA-Public Use
  Company Number: S04-USA-03003-01

PATIENT
  Sex: Male

DRUGS (2)
  1. LEXAPRO [Suspect]
  2. PROZAC [Suspect]

REACTIONS (3)
  - AKATHISIA [None]
  - COMPLETED SUICIDE [None]
  - INSOMNIA [None]
